FAERS Safety Report 18821748 (Version 3)
Quarter: 2021Q1

REPORT INFORMATION
  Report Type: Spontaneous
  Country: US (occurrence: US)
  Receive Date: 20210202
  Receipt Date: 20210322
  Transmission Date: 20210419
  Serious: Yes (Other)
  Sender: FDA-Public Use
  Company Number: US-PFIZER INC-2021094120

PATIENT
  Age: 52 Year
  Sex: Male

DRUGS (2)
  1. INLYTA [Suspect]
     Active Substance: AXITINIB
     Dosage: 5 MG
  2. INLYTA [Suspect]
     Active Substance: AXITINIB
     Indication: RENAL CANCER
     Dosage: 5 MG
     Dates: start: 20201001

REACTIONS (5)
  - Rash [Unknown]
  - Sensitive skin [Unknown]
  - Hypothyroidism [Unknown]
  - Dysphonia [Unknown]
  - Wound [Unknown]

NARRATIVE: CASE EVENT DATE: 20201214
